FAERS Safety Report 24021612 (Version 1)
Quarter: 2024Q2

REPORT INFORMATION
  Report Type: Spontaneous
  Country: US (occurrence: US)
  Receive Date: 20240627
  Receipt Date: 20240627
  Transmission Date: 20240716
  Serious: Yes (Other)
  Sender: FDA-Public Use
  Company Number: US-MALLINCKRODT-MNK202404080

PATIENT
  Age: 57 Year
  Sex: Male

DRUGS (6)
  1. NITRIC OXIDE [Suspect]
     Active Substance: NITRIC OXIDE
     Indication: Product used for unknown indication
     Dosage: UNKNOWN
     Route: 055
  2. VANCOMYCIN [Concomitant]
     Active Substance: VANCOMYCIN
     Dosage: UNKNOWN
     Route: 042
  3. PIPERACILLIN AND TAZOBACTAM [Concomitant]
     Active Substance: PIPERACILLIN SODIUM\TAZOBACTAM SODIUM
     Dosage: UNKNOWN
  4. MICAFUNGIN [Concomitant]
     Active Substance: MICAFUNGIN SODIUM
     Dosage: UNKNOWN
  5. AMOXICILLIN\CLAVULANATE POTASSIUM [Concomitant]
     Active Substance: AMOXICILLIN\CLAVULANATE POTASSIUM
     Dosage: UNKNOWN
     Route: 048
  6. DOXYCYCLINE [Concomitant]
     Active Substance: DOXYCYCLINE\DOXYCYCLINE HYCLATE
     Dosage: UNKNOWN

REACTIONS (4)
  - Bronchial fistula [Unknown]
  - Spleen disorder [Unknown]
  - Splenic necrosis [Unknown]
  - Product use issue [Unknown]
